FAERS Safety Report 7554459-1 (Version None)
Quarter: 2011Q2

REPORT INFORMATION
  Report Type: 
  Country: None (occurrence: None)
  Receive Date: 20110617
  Receipt Date: 20110607
  Transmission Date: 20111010
  Serious: Yes (Life-Threatening, Disabling, Other)
  Sender: FDA-Public Use
  Company Number: A0927606A

PATIENT
  Age: 76 Year
  Sex: Male
  Weight: 79.5 kg

DRUGS (13)
  1. JALYN [Suspect]
     Indication: PROSTATE CANCER METASTATIC
     Dosage: 1TAB PER DAY
     Route: 048
     Dates: start: 20101208
  2. LOVAZA [Concomitant]
  3. LUPRON [Concomitant]
  4. LYSINE [Concomitant]
  5. ASPIRIN [Concomitant]
  6. CINNAMON [Concomitant]
  7. OMEPRAZOLE [Concomitant]
  8. CRYSTALLINE VIT B12 INJ [Concomitant]
  9. XANAX [Concomitant]
  10. NORVASC [Concomitant]
     Dosage: 2.5MG PER DAY
     Route: 048
     Dates: end: 20110511
  11. PROZAC [Concomitant]
  12. TRICOR [Concomitant]
  13. VITAMIN D [Concomitant]

REACTIONS (13)
  - PALLOR [None]
  - FATIGUE [None]
  - DYSPNOEA [None]
  - CHEST DISCOMFORT [None]
  - MUSCULAR WEAKNESS [None]
  - SENSATION OF HEAVINESS [None]
  - BLOOD PRESSURE DECREASED [None]
  - ORTHOSTATIC HYPOTENSION [None]
  - ANGINA PECTORIS [None]
  - MALAISE [None]
  - THERAPEUTIC RESPONSE UNEXPECTED [None]
  - HYPOTENSION [None]
  - ASTHENIA [None]
